FAERS Safety Report 20900031 (Version 1)
Quarter: 2022Q2

REPORT INFORMATION
  Report Type: Report from Study
  Country: US (occurrence: US)
  Receive Date: 20220601
  Receipt Date: 20220601
  Transmission Date: 20220721
  Serious: Yes (Other)
  Sender: FDA-Public Use
  Company Number: US-MYLANLABS-2022M1041067

PATIENT
  Age: 24 Year
  Sex: Male

DRUGS (1)
  1. BUPROPION [Suspect]
     Active Substance: BUPROPION
     Indication: Product used for unknown indication
     Dosage: 1200 MILLIGRAM EXTENDED RELEASE; RECEIVED 1200MG 18H PRIOR AND 1200MG WITHIN 4H
     Route: 048

REACTIONS (5)
  - Accidental overdose [Unknown]
  - Seizure [Unknown]
  - Feeling jittery [Unknown]
  - Anxiety [Unknown]
  - Agitation [Unknown]
